FAERS Safety Report 9706781 (Version 3)
Quarter: 2014Q1

REPORT INFORMATION
  Report Type: Report from Study
  Country: AU (occurrence: AU)
  Receive Date: 20131125
  Receipt Date: 20140305
  Transmission Date: 20141002
  Serious: Yes (Hospitalization, Other)
  Sender: FDA-Public Use
  Company Number: PHHY2013AU133962

PATIENT
  Age: 51 Year
  Sex: Male

DRUGS (7)
  1. CLOZARIL [Suspect]
     Indication: SCHIZOPHRENIA
     Dosage: 600 MG
     Dates: start: 20060412
  2. CLOZARIL [Suspect]
     Indication: SCHIZOAFFECTIVE DISORDER
  3. VALPROATE SODIUM [Suspect]
     Indication: MOOD ALTERED
     Dosage: 500 MG, UNK
     Route: 048
  4. ROSUVASTATIN [Suspect]
     Indication: BLOOD CHOLESTEROL INCREASED
     Dosage: 10 MG, UNK
     Route: 048
  5. ASPIRIN [Suspect]
     Indication: BLOOD DISORDER
     Dosage: 100 MG, UNK
     Route: 048
  6. DRAMAMINE [Concomitant]
     Dosage: 100 MG, UNK
     Route: 048
  7. AMLODIPINE [Concomitant]
     Indication: HYPERTENSION
     Dosage: 5 MG, UNK
     Route: 048
     Dates: start: 201306

REACTIONS (6)
  - Musculoskeletal chest pain [Recovering/Resolving]
  - C-reactive protein increased [Recovered/Resolved]
  - Chronic obstructive pulmonary disease [Not Recovered/Not Resolved]
  - Dyspnoea [Unknown]
  - Antipsychotic drug level below therapeutic [Not Recovered/Not Resolved]
  - Antipsychotic drug level above therapeutic [Not Recovered/Not Resolved]
